FAERS Safety Report 8602341-0 (Version None)
Quarter: 2012Q2

REPORT INFORMATION
  Report Type: 
  Country: None (occurrence: None)
  Receive Date: 20120423
  Receipt Date: 20080903
  Transmission Date: 20120825
  Serious: Yes (Other)
  Sender: FDA-Public Use
  Company Number: PHEH2008US07095

PATIENT
  Sex: Female

DRUGS (7)
  1. SERTRALINE HYDROCHLORIDE [Concomitant]
  2. FEMARA [Suspect]
     Indication: BREAST CANCER METASTATIC
     Dosage: 2.5 MG, QD, ORAL
     Route: 048
     Dates: start: 20030801, end: 20031101
  3. FOLTX (CYANOCOBALAMIN, FOLIC ACID, PYRIDOXINE) [Concomitant]
  4. SYNTHROID [Concomitant]
  5. METOPROLOL TARTRATE [Concomitant]
  6. CALCIMATE PLUS (BORON, CALCIUM, COLECALCIFEROL, COPPER, MAGNESIUM, ZIN [Concomitant]
  7. FASLODEX [Concomitant]

REACTIONS (3)
  - NEOPLASM RECURRENCE [None]
  - COMPUTERISED TOMOGRAM ABNORMAL [None]
  - BIOPSY BONE MARROW ABNORMAL [None]
